FAERS Safety Report 21031787 (Version 3)
Quarter: 2022Q4

REPORT INFORMATION
  Report Type: Report from Study
  Country: CA (occurrence: CA)
  Receive Date: 20220701
  Receipt Date: 20221012
  Transmission Date: 20230113
  Serious: Yes (Hospitalization, Other)
  Sender: FDA-Public Use
  Company Number: CA-BAUSCH-BL-2019-005955

PATIENT
  Age: 64 Year
  Sex: Male

DRUGS (5)
  1. SILIQ [Suspect]
     Active Substance: BRODALUMAB
     Indication: Psoriasis
     Dosage: 210 MG/1.5 ML, WEEKLY WEEK 0 - 04/FEB/2019, WEEK 1 - /FEB/2019, WEEK 2 - /FEB/2019
     Route: 058
     Dates: start: 20190204, end: 201902
  2. SILIQ [Suspect]
     Active Substance: BRODALUMAB
     Dosage: 210 MG/1.5 ML, Q 2 WEEKS
     Route: 058
     Dates: start: 2022
  3. MODERNA COVID-19 VACCINE [Suspect]
     Active Substance: ELASOMERAN
     Indication: COVID-19 immunisation
     Route: 065
     Dates: start: 202104
  4. PERINDOPRIL [Concomitant]
     Active Substance: PERINDOPRIL
     Indication: Product used for unknown indication
     Route: 065
  5. OTEZLA [Concomitant]
     Active Substance: APREMILAST
     Indication: Product used for unknown indication
     Route: 065

REACTIONS (6)
  - Pancreatitis [Unknown]
  - Hip arthroplasty [Recovered/Resolved]
  - Injection site discomfort [Recovered/Resolved]
  - Headache [Unknown]
  - Injection site infection [Recovering/Resolving]
  - Wrong technique in product usage process [Unknown]

NARRATIVE: CASE EVENT DATE: 20190101
